FAERS Safety Report 7609295-4 (Version None)
Quarter: 2011Q3

REPORT INFORMATION
  Report Type: 
  Country: None (occurrence: None)
  Receive Date: 20110714
  Receipt Date: 20110701
  Transmission Date: 20111222
  Serious: Yes (Hospitalization, Other)
  Sender: FDA-Public Use
  Company Number: PHHY2008BR26688

PATIENT
  Sex: Male
  Weight: 95 kg

DRUGS (6)
  1. TRILEPTAL [Suspect]
     Indication: EPILEPSY
     Dosage: 600 MG, QID
     Route: 048
  2. TRILEPTAL [Suspect]
     Dosage: 3 DF, 1 TABLET IN THE AFTERNOON AND 2 TABLETS IN THE NIGHT
     Route: 048
     Dates: start: 20070101
  3. DIAMOX SRC [Suspect]
     Indication: EPILEPSY
     Route: 048
  4. DEPAKOTE [Suspect]
     Dosage: 500 MG, UNK
  5. GARDENAL [Suspect]
     Indication: EPILEPSY
     Route: 048
  6. TEGRETOL [Suspect]
     Indication: EPILEPSY
     Dosage: 200 MG

REACTIONS (4)
  - NOSOCOMIAL INFECTION [None]
  - JOINT DISLOCATION [None]
  - EPILEPSY [None]
  - MEMORY IMPAIRMENT [None]
